FAERS Safety Report 21129556 (Version 1)
Quarter: 2022Q3

REPORT INFORMATION
  Report Type: Spontaneous
  Country: CN (occurrence: CN)
  Receive Date: 20220726
  Receipt Date: 20220726
  Transmission Date: 20221026
  Serious: Yes (Other)
  Sender: FDA-Public Use
  Company Number: None

PATIENT
  Age: 32 Year
  Sex: Female
  Weight: 58 kg

DRUGS (2)
  1. OLANZAPINE [Suspect]
     Active Substance: OLANZAPINE
     Indication: Schizophrenia
     Dosage: 10MG, QD, QN
     Route: 048
     Dates: start: 20220525
  2. OLANZAPINE [Suspect]
     Active Substance: OLANZAPINE
     Dosage: 7.5MG,QD, QN
     Route: 048
     Dates: start: 20220606, end: 20220719

REACTIONS (1)
  - Gaze palsy [Recovered/Resolved]

NARRATIVE: CASE EVENT DATE: 20220623
